FAERS Safety Report 26175039 (Version 1)
Quarter: 2025Q4

REPORT INFORMATION
  Report Type: Spontaneous
  Country: CA (occurrence: CA)
  Receive Date: 20251218
  Receipt Date: 20251218
  Transmission Date: 20260117
  Serious: Yes (Death, Other)
  Sender: TEVA
  Company Number: CA-TEVA-VS-3402400

PATIENT

DRUGS (1)
  1. PROPRANOLOL [Suspect]
     Active Substance: PROPRANOLOL HYDROCHLORIDE
     Indication: Ventricular tachycardia
     Dosage: DOSE FORM: NOT SPECIFIED
     Route: 064

REACTIONS (3)
  - Hydrops foetalis [Fatal]
  - Off label use [Fatal]
  - Drug effect less than expected [Fatal]
